FAERS Safety Report 9020079 (Version 1)
Quarter: 2013Q1

REPORT INFORMATION
  Report Type: Spontaneous
  Country: US (occurrence: US)
  Receive Date: 20130119
  Receipt Date: 20130119
  Transmission Date: 20140127
  Serious: No
  Sender: FDA-Public Use
  Company Number: US-ALLERGAN-1210908US

PATIENT
  Age: 63 Year
  Sex: Female

DRUGS (9)
  1. BOTOX COSMETIC [Suspect]
     Indication: SKIN WRINKLING
     Dosage: UNK, SINGLE
     Route: 030
     Dates: start: 20120724, end: 20120724
  2. BOTOX COSMETIC [Suspect]
     Indication: SKIN WRINKLING
  3. BOTOX COSMETIC [Suspect]
     Indication: SKIN WRINKLING
  4. BOTOX COSMETIC [Suspect]
     Indication: SKIN WRINKLING
  5. PLAQUENIL [Concomitant]
     Indication: AUTOIMMUNE DISORDER
     Dosage: UNK
  6. ACTIGALL [Concomitant]
     Indication: LIVER DISORDER
     Dosage: UNK
  7. SINGULAIR [Concomitant]
     Indication: ASTHMA
     Dosage: UNK
  8. ARTIFICIAL TEARS [Concomitant]
     Indication: SJOGREN^S SYNDROME
     Dosage: 2 UNK, UNK
     Route: 047
  9. VITAMINS [Concomitant]
     Indication: NUTRITIONAL SUPPLEMENTATION
     Dosage: UNK

REACTIONS (3)
  - Off label use [Unknown]
  - Vision blurred [Unknown]
  - Diplopia [Unknown]
